FAERS Safety Report 5657321-4 (Version None)
Quarter: 2008Q1

REPORT INFORMATION
  Report Type: 
  Country: None (occurrence: None)
  Receive Date: 20080310
  Receipt Date: 20080229
  Transmission Date: 20080703
  Serious: Yes (Hospitalization, Other)
  Sender: FDA-Public Use
  Company Number: PHEH2006US01246

PATIENT
  Age: 57 Year
  Sex: Female
  Weight: 71.201 kg

DRUGS (17)
  1. AREDIA [Suspect]
     Dosage: 60 MG MONTHLY
     Route: 042
     Dates: start: 20040824, end: 20050724
  2. AREDIA [Suspect]
     Dosage: 30 MG, MONTHLY
     Route: 042
     Dates: start: 20050726, end: 20060119
  3. ZOMETA [Suspect]
     Indication: METASTASES TO BONE
     Dosage: 4 MG, MONTHLY
     Dates: start: 20011206, end: 20040427
  4. ZOMETA [Suspect]
     Dosage: 4 MG, MONTHLY
     Dates: start: 20060228, end: 20070115
  5. XELODA [Concomitant]
     Indication: BREAST CANCER METASTATIC
     Dosage: 500 MG, TID
     Dates: start: 20040413
  6. PROZAC [Concomitant]
     Indication: DEPRESSION
     Dosage: 20 MG, QD
     Route: 048
  7. ARIMIDEX [Concomitant]
     Indication: METASTASES TO BONE
     Dosage: UNK, QD
     Route: 048
     Dates: start: 20011115, end: 20040224
  8. NAPROSYN [Concomitant]
  9. HYDROCODONE BITARTRATE [Concomitant]
     Dosage: 750 MG, PRN
     Route: 048
  10. ALBUTEROL [Concomitant]
     Dosage: UNK, PRN
  11. MEGACE [Concomitant]
     Dates: start: 20040201
  12. GEMZAR [Concomitant]
     Dates: start: 20041227
  13. TAXOTERE [Concomitant]
     Dosage: 40 MG, UNK
     Dates: start: 20041227
  14. ARANESP [Concomitant]
     Dates: start: 20050110
  15. CYTOXAN [Concomitant]
     Dates: start: 20060209
  16. WELLBUTRIN [Concomitant]
     Indication: DEPRESSION
     Route: 048
  17. TAMOXIFEN [Concomitant]
     Indication: BREAST CANCER

REACTIONS (37)
  - ANAEMIA [None]
  - BIOPSY BLADDER ABNORMAL [None]
  - BIOPSY SKIN ABNORMAL [None]
  - BONE DEBRIDEMENT [None]
  - BONE DISORDER [None]
  - BONE EROSION [None]
  - BONE LESION [None]
  - BONE SCAN ABNORMAL [None]
  - CARPAL TUNNEL SYNDROME [None]
  - DECREASED APPETITE [None]
  - EXCESSIVE GRANULATION TISSUE [None]
  - FLUID REPLACEMENT [None]
  - GINGIVAL BLEEDING [None]
  - GINGIVAL DISORDER [None]
  - HIP FRACTURE [None]
  - HYPERBARIC OXYGEN THERAPY [None]
  - HYPOAESTHESIA [None]
  - IMPAIRED HEALING [None]
  - INTERVERTEBRAL DISC DEGENERATION [None]
  - MASS EXCISION [None]
  - METASTASIS [None]
  - NAUSEA [None]
  - NUCLEAR MAGNETIC RESONANCE IMAGING ABNORMAL [None]
  - ORAL CANDIDIASIS [None]
  - OSTEOMYELITIS [None]
  - OSTEONECROSIS [None]
  - PAIN IN EXTREMITY [None]
  - PAIN IN JAW [None]
  - PHYSIOTHERAPY [None]
  - RADIOTHERAPY [None]
  - RESORPTION BONE INCREASED [None]
  - SPINAL DECOMPRESSION [None]
  - SURGERY [None]
  - THROMBOSIS [None]
  - TOOTH EXTRACTION [None]
  - VOMITING [None]
  - WEIGHT DECREASED [None]
